FAERS Safety Report 7665415-7 (Version None)
Quarter: 2011Q3

REPORT INFORMATION
  Report Type: 
  Country: None (occurrence: None)
  Receive Date: 20110806
  Receipt Date: 20110616
  Transmission Date: 20111222
  Serious: No
  Sender: FDA-Public Use
  Company Number: US-ABBOTT-11P-163-0733429-00

PATIENT
  Sex: Male
  Weight: 108.96 kg

DRUGS (7)
  1. NIASPAN [Suspect]
     Indication: BLOOD CHOLESTEROL INCREASED
     Dates: start: 20100101, end: 20100101
  2. LOVASTATIN [Concomitant]
     Indication: BLOOD CHOLESTEROL INCREASED
  3. BYSTOLIC [Concomitant]
     Indication: HYPERTENSION
  4. ZYRTEC [Concomitant]
     Indication: HYPERSENSITIVITY
  5. LOVAZA [Concomitant]
     Indication: BLOOD CHOLESTEROL INCREASED
  6. ASPIRIN [Concomitant]
     Indication: CARDIOVASCULAR EVENT PROPHYLAXIS
  7. LISINOPRIL [Concomitant]
     Indication: HYPERTENSION

REACTIONS (2)
  - PRURITUS [None]
  - SKIN BURNING SENSATION [None]
